FAERS Safety Report 21695065 (Version 1)
Quarter: 2022Q4

REPORT INFORMATION
  Report Type: Report from Study
  Country: US (occurrence: US)
  Receive Date: 20221207
  Receipt Date: 20221207
  Transmission Date: 20230113
  Serious: No
  Sender: FDA-Public Use
  Company Number: US-ABBVIE-4176004

PATIENT
  Sex: Male

DRUGS (3)
  1. HUMIRA [Suspect]
     Active Substance: ADALIMUMAB
     Indication: Colitis ulcerative
     Route: 058
  2. Pfizer/BioNTech [Concomitant]
     Indication: COVID-19 immunisation
     Dosage: FREQUENCY 1-1-ONCE?FIRST DOSE
     Route: 030
     Dates: start: 20210120, end: 20210120
  3. Pfizer/BioNTech [Concomitant]
     Indication: COVID-19 immunisation
     Dosage: FREQUENCY 1-1-ONCE?THIRD/BOOSTER DOSE
     Route: 030
     Dates: start: 20210901, end: 20210901

REACTIONS (2)
  - Rash [Recovered/Resolved]
  - Dyspnoea [Recovered/Resolved]
